FAERS Safety Report 5661183-9 (Version None)
Quarter: 2008Q1

REPORT INFORMATION
  Report Type: 
  Country: None (occurrence: None)
  Receive Date: 20080306
  Receipt Date: 20080220
  Transmission Date: 20080703
  Serious: Yes (Death, Hospitalization)
  Sender: FDA-Public Use
  Company Number: 2008S1002794

PATIENT
  Age: 78 Year
  Sex: Male

DRUGS (2)
  1. FLUTAMIDE [Suspect]
     Indication: PROSTATE CANCER
     Dosage: 750 MG;DAILY
     Dates: start: 20060308, end: 20060506
  2. LUTEINIZING HORMONE-RELEASING HOEMONE (GONADORELIN) [Concomitant]

REACTIONS (2)
  - ACUTE HEPATIC FAILURE [None]
  - HEPATITIS [None]
